FAERS Safety Report 10684994 (Version 1)
Quarter: 2014Q4

REPORT INFORMATION
  Report Type: Spontaneous
  Country: US (occurrence: None)
  Receive Date: 20141230
  Receipt Date: 20141230
  Transmission Date: 20150529
  Serious: Yes (Other)
  Sender: FDA-Public Use
  Company Number: None

PATIENT
  Age: 75 Year
  Sex: Female
  Weight: 94.8 kg

DRUGS (1)
  1. IMBRUVICA [Suspect]
     Active Substance: IBRUTINIB
     Indication: CHRONIC LYMPHOCYTIC LEUKAEMIA
     Dosage: 3 PILLS  ONCE DAILY TAKEN BY MOUTH
     Route: 048
     Dates: start: 20140214, end: 20141229

REACTIONS (5)
  - Skin haemorrhage [None]
  - Skin discolouration [None]
  - Tenderness [None]
  - Contusion [None]
  - Joint swelling [None]

NARRATIVE: CASE EVENT DATE: 20140711
